FAERS Safety Report 4402999-6 (Version None)
Quarter: 2004Q3

REPORT INFORMATION
  Report Type: 
  Country: None (occurrence: None)
  Receive Date: 20040721
  Receipt Date: 20031003
  Transmission Date: 20050211
  Serious: Yes (Life-Threatening, Other)
  Sender: FDA-Public Use
  Company Number: US-GLAXOSMITHKLINE-A0428709A

PATIENT
  Age: 15 Year
  Sex: Female
  Weight: 77.3 kg

DRUGS (1)
  1. IMITREX [Suspect]
     Indication: ILL-DEFINED DISORDER
     Dosage: 50MG PER DAY
     Route: 048
     Dates: start: 20031002, end: 20031003

REACTIONS (2)
  - HYPERSENSITIVITY [None]
  - OESOPHAGEAL STENOSIS [None]
